FAERS Safety Report 15035050 (Version 6)
Quarter: 2018Q3

REPORT INFORMATION
  Report Type: Spontaneous
  Country: US (occurrence: US)
  Receive Date: 20180620
  Receipt Date: 20180711
  Transmission Date: 20181010
  Serious: No
  Sender: FDA-Public Use
  Company Number: US-PFIZER INC-2018244913

PATIENT

DRUGS (1)
  1. ARGATROBAN. [Suspect]
     Active Substance: ARGATROBAN
     Indication: SPONTANEOUS HEPARIN-INDUCED THROMBOCYTOPENIA SYNDROME
     Dosage: 10 MCG/KG/MIN

REACTIONS (1)
  - Anticoagulation drug level below therapeutic [Unknown]
